FAERS Safety Report 20845104 (Version 1)
Quarter: 2022Q2

REPORT INFORMATION
  Report Type: Spontaneous
  Country: US (occurrence: None)
  Receive Date: 20220517
  Receipt Date: 20220517
  Transmission Date: 20220721
  Serious: No
  Sender: FDA-Public Use
  Company Number: None

PATIENT
  Age: 55 Year
  Sex: Female
  Weight: 96.3 kg

DRUGS (1)
  1. REMICADE [Suspect]
     Active Substance: INFLIXIMAB
     Indication: Crohn^s disease
     Dosage: OTHER FREQUENCY : IV EVERY 8 WEEKS;?
     Route: 042

REACTIONS (4)
  - Headache [None]
  - Back pain [None]
  - Pain [None]
  - Pyrexia [None]

NARRATIVE: CASE EVENT DATE: 20220511
